FAERS Safety Report 8385121-3 (Version None)
Quarter: 2012Q2

REPORT INFORMATION
  Report Type: 
  Country: None (occurrence: None)
  Receive Date: 20120524
  Receipt Date: 20120518
  Transmission Date: 20120825
  Serious: Yes (Hospitalization)
  Sender: FDA-Public Use
  Company Number: US-BAXTER-2012BAX004616

PATIENT
  Sex: Male
  Weight: 101.8 kg

DRUGS (15)
  1. AMBIEN [Concomitant]
     Route: 048
  2. MORPHINE [Concomitant]
     Route: 048
  3. ATIVAN [Concomitant]
     Indication: ANXIETY
     Route: 048
     Dates: start: 20110812
  4. MAGNESIUM OXIDE [Concomitant]
     Route: 048
  5. CYTOXAN [Suspect]
     Indication: CHEMOTHERAPY
     Route: 042
     Dates: start: 20110812, end: 20110914
  6. NORVASC [Concomitant]
     Indication: BLOOD PRESSURE
     Route: 048
     Dates: start: 20110708, end: 20111208
  7. LACTULOSE [Concomitant]
     Indication: CONSTIPATION
     Route: 048
     Dates: start: 20110812, end: 20120323
  8. DILAUDID [Concomitant]
     Indication: PAIN
     Route: 048
     Dates: start: 20110731, end: 20120126
  9. NEURONTIN [Concomitant]
     Indication: PAIN
     Route: 048
     Dates: start: 20110731
  10. MIRALAX [Concomitant]
     Route: 048
  11. METOPROLOL [Concomitant]
     Route: 048
  12. VELCADE [Suspect]
     Indication: CHEMOTHERAPY
     Route: 042
     Dates: start: 20110812, end: 20111014
  13. VALTREX [Concomitant]
     Route: 048
  14. DECADRON [Suspect]
     Indication: CHEMOTHERAPY
     Route: 048
     Dates: start: 20110907, end: 20111014
  15. PROTONIX [Concomitant]
     Route: 048

REACTIONS (1)
  - SYNCOPE [None]
